FAERS Safety Report 9174062 (Version 1)
Quarter: 2013Q1

REPORT INFORMATION
  Report Type: Spontaneous
  Country: US (occurrence: None)
  Receive Date: 20130318
  Receipt Date: 20130318
  Transmission Date: 20140127
  Serious: Yes (Other)
  Sender: FDA-Public Use
  Company Number: None

PATIENT
  Age: 72 Year
  Sex: Male
  Weight: 92.99 kg

DRUGS (1)
  1. AZITHROMYCIN [Suspect]
     Indication: BRONCHITIS
     Dosage: 2 1ST DAY, 1 EACH DAY X 4 DAYS
     Dates: start: 20130312, end: 20130314

REACTIONS (5)
  - Hiccups [None]
  - Dyspepsia [None]
  - Diarrhoea [None]
  - Vision blurred [None]
  - Pain [None]
